FAERS Safety Report 8830840 (Version 1)
Quarter: 2012Q4

REPORT INFORMATION
  Report Type: 
  Country: US (occurrence: US)
  Receive Date: 20121008
  Receipt Date: 20121008
  Transmission Date: 20130627
  Serious: Yes (Other)
  Sender: FDA-Public Use
  Company Number: US-PFIZER INC-2012247802

PATIENT
  Age: 37 Year
  Sex: Male
  Weight: 90.7 kg

DRUGS (2)
  1. ADVIL [Suspect]
     Indication: MUSCULOSKELETAL PAIN
     Dosage: 200 mg, as needed
     Route: 048
     Dates: start: 2008, end: 20120928
  2. ADVIL [Suspect]
     Indication: JOINT SWELLING

REACTIONS (4)
  - Arthropathy [Unknown]
  - Nasopharyngitis [Unknown]
  - Poor quality drug administered [Unknown]
  - Product odour abnormal [Unknown]
